FAERS Safety Report 8580947-5 (Version None)
Quarter: 2012Q3

REPORT INFORMATION
  Report Type: 
  Country: None (occurrence: None)
  Receive Date: 20120809
  Receipt Date: 20120806
  Transmission Date: 20120928
  Serious: No
  Sender: FDA-Public Use
  Company Number: US-PFIZER INC-2012148120

PATIENT
  Age: 17 Month
  Sex: Male
  Weight: 8.6 kg

DRUGS (2)
  1. PEDIATRIC ADVIL [Suspect]
     Indication: PYREXIA
     Dosage: 3.75 ML, UNK
     Route: 048
     Dates: start: 20120619
  2. SINGULAIR [Concomitant]
     Indication: LOWER RESPIRATORY TRACT INFECTION
     Dosage: UNK

REACTIONS (3)
  - PRODUCT QUALITY ISSUE [None]
  - OVERDOSE [None]
  - PYREXIA [None]
